FAERS Safety Report 7659779-8 (Version None)
Quarter: 2011Q3

REPORT INFORMATION
  Report Type: 
  Country: None (occurrence: None)
  Receive Date: 20110805
  Receipt Date: 20110308
  Transmission Date: 20111222
  Serious: No
  Sender: FDA-Public Use
  Company Number: US-ABBOTT-11P-163-0695565-00

PATIENT
  Sex: Female
  Weight: 61.29 kg

DRUGS (5)
  1. DEPAKOTE ER [Suspect]
     Indication: AFFECTIVE DISORDER
     Dates: start: 20101130, end: 20101209
  2. DEPAKOTE ER [Suspect]
     Indication: AFFECTIVE DISORDER
     Dosage: 500MG DAILY
     Dates: start: 20101216, end: 20110101
  3. ATENOLOL [Concomitant]
     Indication: HYPERTENSION
  4. DEPAKOTE ER [Suspect]
     Indication: AFFECTIVE DISORDER
     Dates: start: 20101210, end: 20101215
  5. KLONOPIN [Concomitant]
     Indication: PRODUCT USED FOR UNKNOWN INDICATION

REACTIONS (1)
  - ALOPECIA [None]
